FAERS Safety Report 21015930 (Version 1)
Quarter: 2022Q2

REPORT INFORMATION
  Report Type: Spontaneous
  Country: US (occurrence: None)
  Receive Date: 20220627
  Receipt Date: 20220627
  Transmission Date: 20220721
  Serious: No
  Sender: FDA-Public Use
  Company Number: None

PATIENT
  Age: 54 Year
  Sex: Female

DRUGS (2)
  1. COSENTYX [Suspect]
     Active Substance: SECUKINUMAB
     Indication: Rheumatoid arthritis
     Dosage: FREQUENCY : WEEKLY;? INJECT 150MG ONCE WEEKLY FOR 5 WEEKS THEN 150MG EVERY 4 WEEKS
     Route: 058
     Dates: start: 202203
  2. COSENTYX [Suspect]
     Active Substance: SECUKINUMAB
     Dosage: FREQUENCY : MONTHLY;?
     Route: 058

REACTIONS (2)
  - Product dose omission issue [None]
  - Drug delivery system malfunction [None]

NARRATIVE: CASE EVENT DATE: 20220620
